FAERS Safety Report 9463095 (Version 1)
Quarter: 2013Q3

REPORT INFORMATION
  Report Type: Spontaneous
  Country: US (occurrence: US)
  Receive Date: 20130816
  Receipt Date: 20130816
  Transmission Date: 20140515
  Serious: Yes (Other)
  Sender: FDA-Public Use
  Company Number: CHPA2013US012995

PATIENT
  Sex: Male

DRUGS (1)
  1. BUCKLEY^S UNKNOWN [Suspect]
     Dosage: UNK, UNK
     Route: 065

REACTIONS (3)
  - Bronchitis [Not Recovered/Not Resolved]
  - Pyrexia [Not Recovered/Not Resolved]
  - Cough [Not Recovered/Not Resolved]
